FAERS Safety Report 9532001 (Version 2)
Quarter: 2014Q1

REPORT INFORMATION
  Report Type: Spontaneous
  Country: US (occurrence: US)
  Receive Date: 20130918
  Receipt Date: 20140107
  Transmission Date: 20141002
  Serious: Yes (Hospitalization)
  Sender: FDA-Public Use
  Company Number: US-ASTRAZENECA-2013SE68712

PATIENT
  Age: 62 Year
  Sex: Female
  Weight: 114.8 kg

DRUGS (6)
  1. CRESTOR [Suspect]
     Route: 048
     Dates: start: 2011, end: 20130908
  2. EXFORGE [Concomitant]
     Indication: BLOOD PRESSURE
     Dosage: 5  150 MG.
     Dates: start: 201303
  3. VITAMIN D [Concomitant]
     Dosage: 50,000 UNITS WEEK
     Route: 048
     Dates: start: 201307
  4. CLOPIDOGREL DESCRIBED AS GENERIC PLAVIX [Concomitant]
     Route: 048
     Dates: start: 2011
  5. LEVEMIR FLEX PEN [Concomitant]
     Dosage: 16 IN THE EVENING DAILY
     Route: 058
     Dates: start: 201307
  6. METFORMIN [Concomitant]
     Indication: DIABETES MELLITUS
     Route: 048
     Dates: start: 2012

REACTIONS (19)
  - Myocardial infarction [Unknown]
  - Cerebrovascular accident [Unknown]
  - Gait disturbance [Not Recovered/Not Resolved]
  - Feeling abnormal [Not Recovered/Not Resolved]
  - Anger [Not Recovered/Not Resolved]
  - Chromaturia [Recovering/Resolving]
  - Kidney infection [Unknown]
  - Decreased appetite [Recovering/Resolving]
  - Weight decreased [Recovering/Resolving]
  - Pain [Unknown]
  - Tearfulness [Not Recovered/Not Resolved]
  - Emotional disorder [Not Recovered/Not Resolved]
  - Myalgia [Recovering/Resolving]
  - Type 2 diabetes mellitus [Not Recovered/Not Resolved]
  - Headache [Not Recovered/Not Resolved]
  - Asthenia [Not Recovered/Not Resolved]
  - Nausea [Not Recovered/Not Resolved]
  - Abdominal discomfort [Not Recovered/Not Resolved]
  - Constipation [Unknown]
